FAERS Safety Report 7171712-4 (Version None)
Quarter: 2010Q4

REPORT INFORMATION
  Report Type: 
  Country: None (occurrence: None)
  Receive Date: 20101217
  Receipt Date: 20100126
  Transmission Date: 20110411
  Serious: No
  Sender: FDA-Public Use
  Company Number: US-AMGEN-TCS388736

PATIENT

DRUGS (8)
  1. ENBREL [Suspect]
     Indication: ANKYLOSING SPONDYLITIS
     Dosage: 50 MG, QWK
     Route: 058
     Dates: start: 20070101
  2. HYDROCODONE BITARTRATE AND ACETAMINOPHEN [Concomitant]
     Dosage: UNK UNK, UNK
     Dates: start: 20080608
  3. TERBINAFINE [Concomitant]
     Dosage: UNK UNK, UNK
     Dates: start: 20080319
  4. ESOMEPRAZOLE MAGNESIUM [Concomitant]
     Dosage: UNK UNK, UNK
     Dates: start: 20080801
  5. FENOFIBRATE [Concomitant]
     Dosage: UNK UNK, UNK
     Dates: start: 20081101
  6. VALACYCLOVIR HYDROCHLORIDE [Concomitant]
     Dosage: UNK UNK, UNK
     Dates: start: 20080801
  7. SALBUTAMOL [Concomitant]
     Dosage: UNK UNK, UNK
     Dates: start: 20080101
  8. TADALAFIL [Concomitant]
     Dosage: UNK UNK, UNK
     Dates: start: 20090319

REACTIONS (2)
  - HAEMATOCHEZIA [None]
  - HERNIA [None]
